FAERS Safety Report 15494710 (Version 1)
Quarter: 2018Q4

REPORT INFORMATION
  Report Type: Spontaneous
  Country: GB (occurrence: GB)
  Receive Date: 20181012
  Receipt Date: 20181012
  Transmission Date: 20190205
  Serious: Yes (Hospitalization)
  Sender: FDA-Public Use
  Company Number: PHHY2018GB122391

PATIENT
  Age: 54 Year
  Sex: Male
  Weight: 124.1 kg

DRUGS (1)
  1. ENTRESTO [Suspect]
     Active Substance: SACUBITRIL\VALSARTAN
     Indication: CARDIAC FAILURE CHRONIC
     Dosage: 2 DF, QD
     Route: 048
     Dates: start: 20180905, end: 20180924

REACTIONS (6)
  - Tongue blistering [Unknown]
  - Oropharyngeal pain [Unknown]
  - Dyspnoea [Unknown]
  - Lip swelling [Unknown]
  - Lip blister [Unknown]
  - Oral pain [Unknown]

NARRATIVE: CASE EVENT DATE: 201809
